FAERS Safety Report 5174734-8 (Version None)
Quarter: 2006Q4

REPORT INFORMATION
  Report Type: 
  Country: None (occurrence: None)
  Receive Date: 20061206
  Receipt Date: 20061123
  Transmission Date: 20070319
  Serious: Yes (Other)
  Sender: FDA-Public Use
  Company Number: 2006134182

PATIENT
  Age: 59 Year
  Sex: Female
  Weight: 68.0396 kg

DRUGS (9)
  1. DETROL LA [Suspect]
     Indication: MICTURITION URGENCY
     Dosage: 4 MG (4 MG, 1 IN 1 D), ORAL
     Route: 048
     Dates: start: 20060922
  2. DETROL LA [Suspect]
     Indication: POLLAKIURIA
     Dosage: 4 MG (4 MG, 1 IN 1 D), ORAL
     Route: 048
     Dates: start: 20060922
  3. DETROL LA [Suspect]
     Indication: URINARY INCONTINENCE
     Dosage: 4 MG (4 MG, 1 IN 1 D), ORAL
     Route: 048
     Dates: start: 20060922
  4. LOSEC (OMEPRAZOLE) [Concomitant]
  5. ZELNORM [Concomitant]
  6. CARDIZEM [Concomitant]
  7. ATIVAN [Concomitant]
  8. MOTRIN [Concomitant]
  9. CLIMARA [Concomitant]

REACTIONS (4)
  - ACCOMMODATION DISORDER [None]
  - PHOTOPSIA [None]
  - TUNNEL VISION [None]
  - VISION BLURRED [None]
